FAERS Safety Report 6668479-2 (Version None)
Quarter: 2010Q2

REPORT INFORMATION
  Report Type: 
  Country: None (occurrence: None)
  Receive Date: 20100406
  Receipt Date: 20100331
  Transmission Date: 20101027
  Serious: Yes (Death, Disabling)
  Sender: FDA-Public Use
  Company Number: PHHY2010JP20505

PATIENT
  Age: 58 Year
  Sex: Male

DRUGS (2)
  1. ZOMETA [Suspect]
     Indication: METASTASES TO BONE
     Dosage: 4 MG
     Route: 054
     Dates: end: 20080401
  2. NEXAVAR [Concomitant]
     Dosage: UNK
     Dates: start: 20080501, end: 20081201

REACTIONS (3)
  - GINGIVAL SWELLING [None]
  - NEOPLASM MALIGNANT [None]
  - OSTEONECROSIS [None]
